FAERS Safety Report 5404205-2 (Version None)
Quarter: 2007Q3

REPORT INFORMATION
  Report Type: 
  Country: None (occurrence: None)
  Receive Date: 20070802
  Receipt Date: 20070724
  Transmission Date: 20080115
  Serious: Yes (Other)
  Sender: FDA-Public Use
  Company Number: US-ROCHE-508554

PATIENT
  Sex: Female

DRUGS (7)
  1. XELODA [Suspect]
     Dosage: DOSING SCHEDULE REPORTED AS 3 (500MG) TABS BID.
     Route: 065
     Dates: start: 20070703, end: 20070717
  2. COMPAZINE [Concomitant]
  3. PRILOSEC [Concomitant]
  4. OXYCONTIN [Concomitant]
  5. NEURONTIN [Concomitant]
  6. FASLODEX [Concomitant]
  7. ZOMETA [Concomitant]

REACTIONS (5)
  - ABDOMINAL PAIN UPPER [None]
  - FEEDING DISORDER [None]
  - HEPATIC NEOPLASM [None]
  - LUNG NEOPLASM [None]
  - MALAISE [None]
